FAERS Safety Report 8494430-9 (Version None)
Quarter: 2012Q3

REPORT INFORMATION
  Report Type: 
  Country: None (occurrence: None)
  Receive Date: 20120709
  Receipt Date: 20120629
  Transmission Date: 20120928
  Serious: No
  Sender: FDA-Public Use
  Company Number: US-US-EMD SERONO, INC.-7099375

PATIENT
  Sex: Male
  Weight: 64 kg

DRUGS (3)
  1. LEXAPRO [Concomitant]
     Indication: DEPRESSION
  2. REBIF [Suspect]
     Indication: MULTIPLE SCLEROSIS
     Route: 058
     Dates: start: 20110719
  3. TYLOX [Concomitant]
     Indication: PAIN

REACTIONS (2)
  - NAUSEA [None]
  - VOMITING [None]
